FAERS Safety Report 7318775-0 (Version None)
Quarter: 2011Q1

REPORT INFORMATION
  Report Type: 
  Country: None (occurrence: None)
  Receive Date: 20110228
  Receipt Date: 20100514
  Transmission Date: 20110831
  Serious: No
  Sender: FDA-Public Use
  Company Number: A0859760A

PATIENT
  Age: 48 Year
  Sex: Female

DRUGS (9)
  1. LEVOTHYROXINE SODIUM [Concomitant]
  2. IMITREX [Suspect]
     Indication: MIGRAINE
     Dosage: .5ML AS REQUIRED
     Route: 058
     Dates: end: 20100301
  3. OXYCONTIN [Concomitant]
  4. XANAX [Concomitant]
  5. CLONAZEPAM [Concomitant]
  6. LORCET-HD [Concomitant]
  7. ZOLOFT [Concomitant]
  8. NAPROXIN [Concomitant]
  9. FLEXERIL [Concomitant]

REACTIONS (1)
  - INJECTION SITE HAEMORRHAGE [None]
